FAERS Safety Report 6614319-7 (Version None)
Quarter: 2010Q1

REPORT INFORMATION
  Report Type: 
  Country: None (occurrence: None)
  Receive Date: 20100303
  Receipt Date: 20100303
  Transmission Date: 20100710
  Serious: Yes (Other)
  Sender: FDA-Public Use
  Company Number: None

PATIENT
  Age: 44 Year
  Sex: Female
  Weight: 99.7913 kg

DRUGS (2)
  1. MEVACOR [Suspect]
     Indication: HYPERLIPIDAEMIA
     Dosage: 20 MG 1 DAILY PO
     Route: 048
     Dates: start: 20080818, end: 20090416
  2. ZOCOR [Suspect]
     Indication: HYPERLIPIDAEMIA
     Dosage: 40 MG 1 DAILY PO
     Route: 048
     Dates: start: 20090416, end: 20100223

REACTIONS (1)
  - ALOPECIA [None]
